FAERS Safety Report 4532824-4 (Version None)
Quarter: 2004Q4

REPORT INFORMATION
  Report Type: 
  Country: None (occurrence: None)
  Receive Date: 20041220
  Receipt Date: 20041220
  Transmission Date: 20050328
  Serious: Yes (Other)
  Sender: FDA-Public Use
  Company Number: None

PATIENT
  Age: 48 Year
  Sex: Female

DRUGS (1)
  1. PAROXETINE   20MG [Suspect]
     Dosage: 1               1           ORAL
     Route: 048

REACTIONS (8)
  - COGNITIVE DISORDER [None]
  - CONFUSIONAL STATE [None]
  - DIZZINESS [None]
  - EYE IRRITATION [None]
  - EYE SWELLING [None]
  - HYPERACUSIS [None]
  - INSOMNIA [None]
  - MEDICATION ERROR [None]
